FAERS Safety Report 9571462 (Version 1)
Quarter: 2013Q1

REPORT INFORMATION
  Report Type: Spontaneous
  Country: US (occurrence: None)
  Receive Date: 20120709
  Receipt Date: 20120709
  Transmission Date: 20140127
  Serious: No
  Sender: FDA-Public Use
  Company Number: 2012HGS-003586

PATIENT
  Age: 32 Year
  Sex: Female
  Weight: 53.52 kg

DRUGS (3)
  1. BENLYSTA [Suspect]
     Dosage: 1 IN 28 D
     Route: 041
     Dates: start: 20120412
  2. PREDNISONE (PREDNISONE) [Concomitant]
  3. ACTONEL (RISEDRONATE-SODIUM) (RISEDRONA SODIUM) [Concomitant]

REACTIONS (2)
  - Headache [None]
  - Pruritus [None]
